FAERS Safety Report 5146080-X (Version None)
Quarter: 2006Q4

REPORT INFORMATION
  Report Type: 
  Country: None (occurrence: None)
  Receive Date: 20061108
  Receipt Date: 20061031
  Transmission Date: 20070319
  Serious: Yes (Other)
  Sender: FDA-Public Use
  Company Number: 2006UW21010

PATIENT
  Age: 89 Year
  Sex: Female

DRUGS (3)
  1. ZESTRIL [Suspect]
     Route: 048
  2. COLCHICINE [Suspect]
     Dosage: 0.5 MG 3 DAILY PO
  3. ZESTORETIC [Concomitant]

REACTIONS (2)
  - SPEECH DISORDER [None]
  - SWOLLEN TONGUE [None]
